FAERS Safety Report 13037686 (Version 1)
Quarter: 2016Q4

REPORT INFORMATION
  Report Type: Spontaneous
  Country: US (occurrence: US)
  Receive Date: 20161217
  Receipt Date: 20161217
  Transmission Date: 20170207
  Serious: Yes (Hospitalization)
  Sender: FDA-Public Use
  Company Number: US-CELGENEUS-USA-2016123879

PATIENT
  Age: 78 Year
  Sex: Male
  Weight: 66.28 kg

DRUGS (2)
  1. REVLIMID [Suspect]
     Active Substance: LENALIDOMIDE
     Indication: PLASMA CELL MYELOMA
     Dosage: 15MG
     Route: 048
     Dates: start: 201611
  2. REVLIMID [Suspect]
     Active Substance: LENALIDOMIDE
     Dosage: 10MG
     Route: 048
     Dates: start: 201612

REACTIONS (3)
  - Fatigue [Unknown]
  - Diarrhoea [Unknown]
  - Constipation [Unknown]

NARRATIVE: CASE EVENT DATE: 201612
